FAERS Safety Report 7864707-6 (Version None)
Quarter: 2011Q4

REPORT INFORMATION
  Report Type: 
  Country: None (occurrence: None)
  Receive Date: 20111028
  Receipt Date: 20111024
  Transmission Date: 20120403
  Serious: Yes (Hospitalization, Other)
  Sender: FDA-Public Use
  Company Number: JP-PFIZER INC-2011216330

PATIENT
  Age: 75 Year
  Sex: Male

DRUGS (1)
  1. AZULFIDINE [Suspect]
     Dosage: UNK
     Route: 048

REACTIONS (1)
  - GLOMERULONEPHRITIS MEMBRANOUS [None]
